FAERS Safety Report 7673819-1 (Version None)
Quarter: 2011Q3

REPORT INFORMATION
  Report Type: 
  Country: None (occurrence: None)
  Receive Date: 20110810
  Receipt Date: 20110729
  Transmission Date: 20111222
  Serious: Yes (Other)
  Sender: FDA-Public Use
  Company Number: PT-JNJFOC-20110512396

PATIENT
  Age: 55 Year
  Sex: Female

DRUGS (7)
  1. ENOXAPARIN [Concomitant]
     Indication: ANTICOAGULANT THERAPY
     Dates: start: 20110401
  2. ASPIRIN [Concomitant]
     Indication: ANTIPLATELET THERAPY
  3. INTELENCE [Suspect]
     Indication: HIV INFECTION
     Route: 048
     Dates: start: 20081201
  4. RITONAVIR [Concomitant]
     Indication: HIV INFECTION
     Dates: start: 20081201
  5. RALTEGRAVIR [Concomitant]
     Indication: HIV INFECTION
     Dates: start: 20081201
  6. OXYGEN [Concomitant]
     Indication: CHRONIC OBSTRUCTIVE PULMONARY DISEASE
  7. PREZISTA [Suspect]
     Indication: HIV INFECTION
     Route: 048
     Dates: start: 20081201

REACTIONS (1)
  - LIPOMATOSIS [None]
